FAERS Safety Report 4267083-3 (Version None)
Quarter: 2004Q1

REPORT INFORMATION
  Report Type: 
  Country: None (occurrence: None)
  Receive Date: 20040107
  Receipt Date: 20031229
  Transmission Date: 20041129
  Serious: Yes (Hospitalization)
  Sender: FDA-Public Use
  Company Number: CIP03003452

PATIENT
  Age: 77 Year
  Sex: Female

DRUGS (1)
  1. ACTONEL [Suspect]
     Dosage: ORAL
     Route: 048

REACTIONS (4)
  - BIOPSY INTESTINE ABNORMAL [None]
  - CALCIUM METABOLISM DISORDER [None]
  - COELIAC DISEASE [None]
  - MALABSORPTION [None]
